FAERS Safety Report 6038592-1 (Version None)
Quarter: 2009Q1

REPORT INFORMATION
  Report Type: 
  Country: None (occurrence: None)
  Receive Date: 20090115
  Receipt Date: 20090112
  Transmission Date: 20090719
  Serious: Yes (Other)
  Sender: FDA-Public Use
  Company Number: B0547909A

PATIENT
  Sex: Male

DRUGS (1)
  1. GLAZIDIM [Suspect]
     Indication: PROPHYLAXIS
     Route: 065

REACTIONS (2)
  - HYPERSENSITIVITY [None]
  - PRODUCT QUALITY ISSUE [None]
